FAERS Safety Report 8131685-4 (Version None)
Quarter: 2012Q1

REPORT INFORMATION
  Report Type: 
  Country: None (occurrence: None)
  Receive Date: 20120213
  Receipt Date: 20120202
  Transmission Date: 20120608
  Serious: Yes (Other)
  Sender: FDA-Public Use
  Company Number: CA-JNJFOC-20120201877

PATIENT
  Sex: Female
  Weight: 46.3 kg

DRUGS (9)
  1. SYNTHROID [Concomitant]
     Route: 065
  2. REMICADE [Suspect]
     Route: 042
     Dates: start: 20111216
  3. METHOTREXATE [Concomitant]
     Route: 065
  4. PANTOPRAZOLE SODIUM [Concomitant]
     Route: 065
  5. FERROUS SULFATE TAB [Concomitant]
     Route: 065
  6. DICLOFENAC SODIUM [Concomitant]
     Route: 065
  7. FOLIC ACID [Concomitant]
     Route: 065
  8. REMICADE [Suspect]
     Indication: RHEUMATOID ARTHRITIS
     Route: 042
     Dates: start: 20090323
  9. REMICADE [Suspect]
     Route: 042
     Dates: start: 20120130

REACTIONS (3)
  - VOMITING [None]
  - EATING DISORDER [None]
  - HEADACHE [None]
